FAERS Safety Report 4845917-9 (Version None)
Quarter: 2005Q4

REPORT INFORMATION
  Report Type: 
  Country: None (occurrence: None)
  Receive Date: 20051201
  Receipt Date: 20051121
  Transmission Date: 20060501
  Serious: Yes (Hospitalization, Other)
  Sender: FDA-Public Use
  Company Number: 2005159246

PATIENT
  Sex: Female
  Weight: 127.9144 kg

DRUGS (9)
  1. GLUCOTROL XL [Suspect]
     Indication: DIABETES MELLITUS NON-INSULIN-DEPENDENT
     Dosage: (10 MG)
  2. GLUCOTROL [Suspect]
     Indication: DIABETES MELLITUS NON-INSULIN-DEPENDENT
     Dosage: (10 MG)
     Dates: start: 20051101
  3. NORVASC [Concomitant]
  4. LOTENSIN [Concomitant]
  5. FUROSEMIDE [Concomitant]
  6. ZAROXOLYN [Concomitant]
  7. ATENOLOL [Concomitant]
  8. VITAMINS (VITAMINS) [Concomitant]
  9. IRON (IRON) [Concomitant]

REACTIONS (7)
  - BLOOD GLUCOSE INCREASED [None]
  - CYSTITIS [None]
  - DRUG DISPENSING ERROR [None]
  - DRUG PRESCRIBING ERROR [None]
  - PANCREATIC DISORDER [None]
  - TREATMENT NONCOMPLIANCE [None]
  - WRONG DRUG ADMINISTERED [None]
